FAERS Safety Report 10922662 (Version 1)
Quarter: 2015Q1

REPORT INFORMATION
  Report Type: Spontaneous
  Country: US (occurrence: US)
  Receive Date: 20150317
  Receipt Date: 20150317
  Transmission Date: 20150721
  Serious: Yes (Hospitalization, Other)
  Sender: FDA-Public Use
  Company Number: US-BAYER-2015-033601

PATIENT
  Age: 20 Year
  Sex: Female

DRUGS (1)
  1. DIPHENHYDRAMINE HYDROCHLORIDE. [Suspect]
     Active Substance: DIPHENHYDRAMINE HYDROCHLORIDE
     Dosage: UNTETERMINED AMOUNT OF TABLETS

REACTIONS (9)
  - Electrocardiogram QT prolonged [Recovered/Resolved]
  - Hallucination, visual [Recovered/Resolved]
  - Drug screen false positive [None]
  - Intentional overdose [None]
  - Lethargy [Recovered/Resolved]
  - Dry mouth [Recovered/Resolved]
  - Sinus tachycardia [Recovered/Resolved]
  - Loss of consciousness [Recovered/Resolved]
  - Urinary retention [Recovered/Resolved]
